FAERS Safety Report 9885041 (Version 1)
Quarter: 2014Q1

REPORT INFORMATION
  Report Type: Spontaneous
  Country: DE (occurrence: DE)
  Receive Date: 20140210
  Receipt Date: 20140210
  Transmission Date: 20141002
  Serious: Yes (Hospitalization, Other)
  Sender: FDA-Public Use
  Company Number: DE-PFIZER INC-2014033359

PATIENT
  Age: 75 Year
  Sex: Male

DRUGS (3)
  1. OXALIPLATIN [Suspect]
     Indication: RECTAL ADENOCARCINOMA
     Dosage: 80 MG/M2, BIMONTHLY REGIMEN
     Route: 042
  2. 5-FU [Concomitant]
     Indication: RECTAL ADENOCARCINOMA
     Dosage: 2400 MG/M2, FOLLOWED ON DAY 1 AS A CONTINUOS INFUSION FOR 46 H
  3. LEUCOVORIN [Concomitant]
     Indication: RECTAL ADENOCARCINOMA
     Dosage: 400 MG/M2, ADMINISTRED ON DAY 1

REACTIONS (1)
  - Hypersensitivity vasculitis [Recovered/Resolved]
